FAERS Safety Report 4446017-2 (Version None)
Quarter: 2004Q3

REPORT INFORMATION
  Report Type: 
  Country: None (occurrence: None)
  Receive Date: 20040910
  Receipt Date: 20040813
  Transmission Date: 20050211
  Serious: Yes (Other)
  Sender: FDA-Public Use
  Company Number: US-GLAXOSMITHKLINE-A0522135A

PATIENT
  Age: 75 Year
  Sex: Male
  Weight: 90.9 kg

DRUGS (4)
  1. LEUKERAN [Suspect]
     Indication: WALDENSTROM'S MACROGLOBULINAEMIA
     Dosage: 2MG SEE DOSAGE TEXT
     Route: 048
  2. ATENOLOL [Concomitant]
  3. DYAZIDE [Concomitant]
  4. LEVOXYL [Concomitant]

REACTIONS (6)
  - AMNESIA [None]
  - CHILLS [None]
  - DEAFNESS [None]
  - DYSKINESIA [None]
  - MUSCLE TWITCHING [None]
  - TINNITUS [None]
